FAERS Safety Report 24429277 (Version 1)
Quarter: 2024Q4

REPORT INFORMATION
  Report Type: Spontaneous
  Country: FR (occurrence: FR)
  Receive Date: 20241011
  Receipt Date: 20241011
  Transmission Date: 20250114
  Serious: Yes (Other)
  Sender: ELI LILLY AND CO
  Company Number: FR-ELI_LILLY_AND_COMPANY-FR202410003526

PATIENT
  Age: 46 Year
  Sex: Female

DRUGS (4)
  1. ABEMACICLIB [Suspect]
     Active Substance: ABEMACICLIB
     Indication: Breast cancer
     Dosage: 100 MG, BID
     Route: 065
     Dates: start: 20240605, end: 20240727
  2. ANASTROZOLE [Concomitant]
     Active Substance: ANASTROZOLE
     Indication: Breast cancer
     Dosage: 1 MG, DAILY
     Dates: start: 202305
  3. OROCAL VITAMINE D3 [CALCIUM CARBONATE;COLECAL [Concomitant]
     Indication: Product used for unknown indication
     Dosage: 1 DOSAGE FORM, DAILY (AT 8 AM)
  4. TRIPTORELIN [Concomitant]
     Active Substance: TRIPTORELIN
     Indication: Product used for unknown indication
     Dosage: 1 DOSAGE FORM, OTHER (EVERY 28 DAYS)

REACTIONS (6)
  - Hepatotoxicity [Unknown]
  - Rectal haemorrhage [Unknown]
  - Hepatic cytolysis [Recovered/Resolved]
  - Hepatic steatosis [Unknown]
  - Melaena [Unknown]
  - Chemotherapeutic drug level increased [Unknown]

NARRATIVE: CASE EVENT DATE: 20240627
